FAERS Safety Report 6547075-1 (Version None)
Quarter: 2009Q4

REPORT INFORMATION
  Report Type: 
  Country: None (occurrence: None)
  Receive Date: 20091215
  Receipt Date: 20091013
  Transmission Date: 20100525
  Serious: Yes (Other)
  Sender: FDA-Public Use
  Company Number: FEI2009-2139

PATIENT
  Age: 28 Year
  Sex: Female
  Weight: 80.2867 kg

DRUGS (1)
  1. INTRAUTERINE COPPER CONTRACEPTIVE [Suspect]
     Indication: CONTRACEPTION
     Dosage: INTRA-UTERINE
     Route: 015
     Dates: start: 20090924, end: 20090930

REACTIONS (4)
  - DIZZINESS [None]
  - DYSARTHRIA [None]
  - METRORRHAGIA [None]
  - VAGINAL HAEMORRHAGE [None]
